FAERS Safety Report 25586142 (Version 1)
Quarter: 2025Q3

REPORT INFORMATION
  Report Type: Spontaneous
  Country: KR (occurrence: KR)
  Receive Date: 20250721
  Receipt Date: 20250721
  Transmission Date: 20251020
  Serious: Yes (Other)
  Sender: MYLAN
  Company Number: KR-MYLANLABS-2025M1059300

PATIENT
  Sex: Female
  Weight: 71 kg

DRUGS (8)
  1. LYRICA [Suspect]
     Active Substance: PREGABALIN
     Indication: Goitre
     Dosage: 1 DOSAGE FORM, BID
     Dates: start: 20230701, end: 20230802
  2. LYRICA [Suspect]
     Active Substance: PREGABALIN
     Dosage: 1 DOSAGE FORM, BID
     Route: 065
     Dates: start: 20230701, end: 20230802
  3. LYRICA [Suspect]
     Active Substance: PREGABALIN
     Dosage: 1 DOSAGE FORM, BID
     Route: 065
     Dates: start: 20230701, end: 20230802
  4. LYRICA [Suspect]
     Active Substance: PREGABALIN
     Dosage: 1 DOSAGE FORM, BID
     Dates: start: 20230701, end: 20230802
  5. ACETAMINOPHEN\IBUPROFEN [Suspect]
     Active Substance: ACETAMINOPHEN\IBUPROFEN
     Indication: Goitre
     Dosage: 1 DOSAGE FORM, TID
     Dates: start: 20230701, end: 20230802
  6. ACETAMINOPHEN\IBUPROFEN [Suspect]
     Active Substance: ACETAMINOPHEN\IBUPROFEN
     Dosage: 1 DOSAGE FORM, TID
     Route: 065
     Dates: start: 20230701, end: 20230802
  7. ACETAMINOPHEN\IBUPROFEN [Suspect]
     Active Substance: ACETAMINOPHEN\IBUPROFEN
     Dosage: 1 DOSAGE FORM, TID
     Route: 065
     Dates: start: 20230701, end: 20230802
  8. ACETAMINOPHEN\IBUPROFEN [Suspect]
     Active Substance: ACETAMINOPHEN\IBUPROFEN
     Dosage: 1 DOSAGE FORM, TID
     Dates: start: 20230701, end: 20230802

REACTIONS (6)
  - Drug reaction with eosinophilia and systemic symptoms [Recovered/Resolved]
  - Liver function test increased [Recovered/Resolved]
  - Eosinophil count increased [Recovered/Resolved]
  - Rash maculo-papular [Recovered/Resolved]
  - Pruritus [Recovered/Resolved]
  - Off label use [Unknown]

NARRATIVE: CASE EVENT DATE: 20230701
